FAERS Safety Report 16737312 (Version 10)
Quarter: 2021Q4

REPORT INFORMATION
  Report Type: Report from Study
  Country: CA (occurrence: CA)
  Receive Date: 20190823
  Receipt Date: 20211204
  Transmission Date: 20220303
  Serious: Yes (Other)
  Sender: FDA-Public Use
  Company Number: PHHY2019CA191052

PATIENT
  Age: 57 Year
  Sex: Female

DRUGS (10)
  1. COSENTYX [Suspect]
     Active Substance: SECUKINUMAB
     Indication: Psoriasis
     Dosage: 300 MG
     Route: 058
     Dates: start: 20190510, end: 20190607
  2. COSENTYX [Suspect]
     Active Substance: SECUKINUMAB
     Dosage: 300 MG
     Route: 058
     Dates: start: 20190707, end: 20191105
  3. COSENTYX [Suspect]
     Active Substance: SECUKINUMAB
     Dosage: 300 MG
     Route: 058
     Dates: start: 20191106
  4. TALTZ [Suspect]
     Active Substance: IXEKIZUMAB
     Indication: Psoriasis
     Dosage: UNK
     Route: 065
     Dates: start: 20210318, end: 20211001
  5. TALTZ [Suspect]
     Active Substance: IXEKIZUMAB
     Dosage: UNK
     Route: 065
     Dates: start: 20210106, end: 20210317
  6. TALTZ [Suspect]
     Active Substance: IXEKIZUMAB
     Dosage: 80 MG, Q4W
     Route: 058
  7. PROTOPIC [Concomitant]
     Active Substance: TACROLIMUS
     Indication: Product used for unknown indication
     Dosage: 1 DF, UNKNOWN
     Route: 065
     Dates: start: 201301
  8. DOVONEX [Concomitant]
     Active Substance: CALCIPOTRIENE
     Indication: Product used for unknown indication
     Dosage: UNK
     Route: 065
     Dates: start: 201301
  9. DERMA-SMOOTHE/FS [Concomitant]
     Active Substance: FLUOCINOLONE ACETONIDE
     Indication: Product used for unknown indication
     Dosage: UNK
     Route: 065
     Dates: start: 201301
  10. KETODERM [Concomitant]
     Indication: Product used for unknown indication
     Dosage: UNK
     Route: 065
     Dates: start: 20190913

REACTIONS (26)
  - Cellulitis [Recovered/Resolved]
  - Angioedema [Recovered/Resolved]
  - Neuropathy peripheral [Not Recovered/Not Resolved]
  - Angioedema [Not Recovered/Not Resolved]
  - Eczema [Recovered/Resolved]
  - Back pain [Not Recovered/Not Resolved]
  - Conjunctivitis allergic [Not Recovered/Not Resolved]
  - Pain in extremity [Not Recovered/Not Resolved]
  - Bronchitis [Recovered/Resolved]
  - Ear infection [Recovered/Resolved]
  - Injection site reaction [Recovered/Resolved]
  - Foot deformity [Not Recovered/Not Resolved]
  - Osteoarthritis [Not Recovered/Not Resolved]
  - Eustachian tube dysfunction [Not Recovered/Not Resolved]
  - Carpal tunnel syndrome [Not Recovered/Not Resolved]
  - Scoliosis [Not Recovered/Not Resolved]
  - Eye pruritus [Recovered/Resolved]
  - Tendonitis [Not Recovered/Not Resolved]
  - Synovial cyst [Not Recovered/Not Resolved]
  - Joint instability [Not Recovered/Not Resolved]
  - Meniscus injury [Not Recovered/Not Resolved]
  - Joint swelling [Recovered/Resolved]
  - Bursitis [Not Recovered/Not Resolved]
  - Patellofemoral pain syndrome [Not Recovered/Not Resolved]
  - Psoriasis [Not Recovered/Not Resolved]
  - Rhinitis [Not Recovered/Not Resolved]

NARRATIVE: CASE EVENT DATE: 20190712
